FAERS Safety Report 11026035 (Version 1)
Quarter: 2015Q2

REPORT INFORMATION
  Report Type: Report from Study
  Country: BE (occurrence: BE)
  Receive Date: 20150414
  Receipt Date: 20150414
  Transmission Date: 20150821
  Serious: Yes (Other)
  Sender: FDA-Public Use
  Company Number: BE-PFIZER INC-2015116889

PATIENT

DRUGS (5)
  1. TRAMADOL [Concomitant]
     Active Substance: TRAMADOL
     Dosage: UNK
  2. DOMPERIDONE [Interacting]
     Active Substance: DOMPERIDONE
     Indication: VOMITING
     Dosage: UNK
  3. METHYLPREDNISOLONE. [Concomitant]
     Active Substance: METHYLPREDNISOLONE
     Dosage: UNK
  4. LOPERAMIDE [Interacting]
     Active Substance: LOPERAMIDE
     Dosage: UNK
  5. SUNITINIB MALATE [Suspect]
     Active Substance: SUNITINIB MALATE
     Indication: RENAL CELL CARCINOMA
     Dosage: UNK, CYCLIC (DAILY, 4 WEEKS ON/2 WEEKS OFF)

REACTIONS (2)
  - Electrocardiogram QT prolonged [Unknown]
  - Drug interaction [Unknown]
